FAERS Safety Report 23480304 (Version 2)
Quarter: 2024Q1

REPORT INFORMATION
  Report Type: Report from Study
  Country: US (occurrence: US)
  Receive Date: 20240205
  Receipt Date: 20240227
  Transmission Date: 20240410
  Serious: Yes (Other)
  Sender: FDA-Public Use
  Company Number: US-ORG100014127-2023000725

PATIENT
  Age: 77 Year
  Sex: Male

DRUGS (8)
  1. LYSODREN [Suspect]
     Active Substance: MITOTANE
     Indication: Adrenal gland cancer
     Dosage: 500MG; 4 TABLETS 3 TIMES DAILY
     Route: 048
     Dates: start: 20230325
  2. METOPIRONE [Suspect]
     Active Substance: METYRAPONE
     Indication: Cushing^s syndrome
     Dosage: 1 CAPSULE BY MOUTH 3 (THREE) TIMES A DAY
     Route: 048
     Dates: start: 20230606
  3. METOPIRONE [Suspect]
     Active Substance: METYRAPONE
     Indication: Cushing^s syndrome
     Dosage: 2 CAPSULES (500MG) BY MOUTH 3 (THREE) TIMES A DAY
     Route: 048
  4. ELIQUIS [Concomitant]
     Active Substance: APIXABAN
     Indication: Product used for unknown indication
  5. OMEPRAZOLE [Concomitant]
     Active Substance: OMEPRAZOLE
     Indication: Product used for unknown indication
  6. SPIRONOLACTONE [Concomitant]
     Active Substance: SPIRONOLACTONE
     Indication: Product used for unknown indication
  7. VALSARTAN [Concomitant]
     Active Substance: VALSARTAN
     Indication: Product used for unknown indication
  8. VERAPAMIL CAP 120MG SR [Concomitant]
     Indication: Product used for unknown indication
     Dosage: SR

REACTIONS (2)
  - Malignant neoplasm progression [Unknown]
  - Off label use [Not Recovered/Not Resolved]

NARRATIVE: CASE EVENT DATE: 20230606
